FAERS Safety Report 14173484 (Version 1)
Quarter: 2017Q4

REPORT INFORMATION
  Report Type: Spontaneous
  Country: US (occurrence: US)
  Receive Date: 20171109
  Receipt Date: 20171109
  Transmission Date: 20180321
  Serious: Yes (Other)
  Sender: FDA-Public Use
  Company Number: None

PATIENT
  Age: 6 Year
  Sex: Male
  Weight: 31.5 kg

DRUGS (1)
  1. METHYLPHENIDATE CD [Suspect]
     Active Substance: METHYLPHENIDATE HYDROCHLORIDE
     Indication: ATTENTION DEFICIT/HYPERACTIVITY DISORDER
     Route: 048
     Dates: start: 20171105, end: 20171107

REACTIONS (3)
  - Formication [None]
  - Hallucination, visual [None]
  - Psychotic disorder [None]

NARRATIVE: CASE EVENT DATE: 20171107
